FAERS Safety Report 8245020-4 (Version None)
Quarter: 2012Q1

REPORT INFORMATION
  Report Type: 
  Country: None (occurrence: None)
  Receive Date: 20120329
  Receipt Date: 20120327
  Transmission Date: 20120608
  Serious: Yes (Death)
  Sender: FDA-Public Use
  Company Number: US-CELGENEUS-163-21880-12033093

PATIENT
  Sex: Female

DRUGS (12)
  1. PRAMIPEXOLE DIHYDROCHLORIDE [Concomitant]
     Route: 065
  2. VYTORIN [Concomitant]
     Route: 065
  3. REVLIMID [Suspect]
     Dosage: 5 MILLIGRAM
     Route: 048
     Dates: start: 20120121, end: 20120101
  4. CALCIUM CARBONATE [Concomitant]
     Route: 065
  5. TIGAN [Concomitant]
     Route: 065
  6. MULTI-VITAMINS [Concomitant]
     Route: 065
  7. BEE POLLEN [Concomitant]
     Route: 065
  8. CELEXA [Concomitant]
     Route: 065
  9. CYCLOBENZAPRINE HCL [Concomitant]
     Route: 065
  10. MESTINON [Concomitant]
     Route: 065
  11. ATENOLOL [Concomitant]
     Route: 065
  12. PREMARIN [Concomitant]
     Route: 065

REACTIONS (1)
  - DEATH [None]
